FAERS Safety Report 18489000 (Version 3)
Quarter: 2021Q1

REPORT INFORMATION
  Report Type: Report from Study
  Country: None (occurrence: US)
  Receive Date: 20201110
  Receipt Date: 20210219
  Transmission Date: 20210419
  Serious: Yes (Hospitalization)
  Sender: FDA-Public Use
  Company Number: US-ABBVIE-20K-163-3638050-00

PATIENT
  Age: 81 Year
  Sex: Female
  Weight: 44.49 kg

DRUGS (6)
  1. RINVOQ [Suspect]
     Active Substance: UPADACITINIB
     Route: 048
     Dates: start: 202012
  2. TYLENOL [Concomitant]
     Active Substance: ACETAMINOPHEN
     Indication: PAIN
     Route: 065
  3. VITAMIN D [Concomitant]
     Active Substance: VITAMIN D NOS
     Indication: SUPPLEMENTATION THERAPY
     Route: 065
  4. METHOTREXATE. [Concomitant]
     Active Substance: METHOTREXATE
     Indication: RHEUMATOID ARTHRITIS
     Route: 065
  5. PREDNISONE. [Concomitant]
     Active Substance: PREDNISONE
     Indication: RHEUMATOID ARTHRITIS
     Route: 065
  6. RINVOQ [Suspect]
     Active Substance: UPADACITINIB
     Indication: RHEUMATOID ARTHRITIS
     Route: 048
     Dates: start: 2019, end: 202012

REACTIONS (13)
  - Pain of skin [Not Recovered/Not Resolved]
  - Dry skin [Not Recovered/Not Resolved]
  - Fall [Unknown]
  - Haemorrhoids [Recovered/Resolved]
  - Pruritus [Not Recovered/Not Resolved]
  - Constipation [Recovered/Resolved]
  - Pain [Recovered/Resolved]
  - Unevaluable event [Recovered/Resolved]
  - Haemorrhage [Recovered/Resolved]
  - Vulvovaginal pain [Not Recovered/Not Resolved]
  - Hospitalisation [Recovered/Resolved]
  - Fall [Recovered/Resolved]
  - Vaginal haemorrhage [Not Recovered/Not Resolved]

NARRATIVE: CASE EVENT DATE: 202009
